FAERS Safety Report 8668569 (Version 3)
Quarter: 2013Q4

REPORT INFORMATION
  Report Type: Spontaneous
  Country: US (occurrence: US)
  Receive Date: 20120717
  Receipt Date: 20131106
  Transmission Date: 20140711
  Serious: Yes (Life-Threatening, Hospitalization)
  Sender: FDA-Public Use
  Company Number: US-MSD-1207USA002624

PATIENT
  Sex: 0

DRUGS (3)
  1. VICTRELIS [Suspect]
  2. PEG-INTRON [Suspect]
     Indication: HEPATITIS C
     Dosage: 1 DF, QW
  3. REBETOL [Suspect]

REACTIONS (1)
  - Pneumonia [Recovering/Resolving]
